FAERS Safety Report 8489117-2 (Version None)
Quarter: 2012Q3

REPORT INFORMATION
  Report Type: 
  Country: None (occurrence: None)
  Receive Date: 20120705
  Receipt Date: 20120627
  Transmission Date: 20120928
  Serious: Yes (Hospitalization, Other)
  Sender: FDA-Public Use
  Company Number: PHHY2012DE024579

PATIENT
  Sex: Male
  Weight: 98 kg

DRUGS (15)
  1. VOLTAREN [Suspect]
     Dates: start: 20090101, end: 20110805
  2. BISOPROLOL FUMARATE [Suspect]
     Dosage: 5 MG, PER DAY
     Dates: start: 20000105, end: 20100118
  3. MARCUMAR [Suspect]
     Dates: start: 20060628
  4. ASPIRIN [Concomitant]
     Dosage: 100 MG, PER DAY
     Dates: start: 20030114
  5. RASILEZ [Suspect]
     Dosage: 300 MG, DAILY
     Route: 048
     Dates: start: 20110209
  6. BEFIBRAT [Concomitant]
     Dosage: 400 MG, PER DAY
     Dates: start: 20061102
  7. RASILEZ [Suspect]
     Indication: HYPERTENSION
     Dosage: 150 MG, PER DAY
     Route: 048
     Dates: start: 20090226, end: 20110208
  8. RAMIPRIL [Suspect]
     Dates: start: 20080506, end: 20100118
  9. HYDROCHLOROTHIAZIDE [Suspect]
     Dosage: 25 MG, PER DAY
     Route: 048
     Dates: start: 20090309
  10. LERCANIDIPINE [Suspect]
     Dosage: 20 MG, PER DAY
     Dates: start: 20080227
  11. DIOVAN [Suspect]
     Indication: HYPERTENSION
     Dosage: 160 MG, PER DAY
     Route: 048
     Dates: start: 20091228, end: 20100111
  12. DOXAZOSIN MESYLATE [Suspect]
     Dosage: 8 MG, PER DAY
     Dates: start: 20071120
  13. NEPRESOL [Suspect]
     Dosage: 50 MG, DAILY
     Dates: start: 20081002
  14. CLONIDINE HCL [Suspect]
     Dosage: 0.6 MG, DAILY
     Dates: start: 20100531
  15. CLONIDINE HCL [Suspect]
     Dosage: 0.15 MG, UNK
     Dates: start: 20090427, end: 20100531

REACTIONS (4)
  - CORONARY ARTERY STENOSIS [None]
  - ANGINA PECTORIS [None]
  - BLOOD PRESSURE DECREASED [None]
  - ANAEMIA [None]
